FAERS Safety Report 8836517 (Version 1)
Quarter: 2012Q4

REPORT INFORMATION
  Report Type: Spontaneous
  Country: US (occurrence: None)
  Receive Date: 20121009
  Receipt Date: 20121009
  Transmission Date: 20130627
  Serious: Yes (Death)
  Sender: FDA-Public Use
  Company Number: FK201202857

PATIENT
  Age: 53 Year
  Sex: Female

DRUGS (2)
  1. NAFCILLIN [Suspect]
     Indication: OSTEOMYELITIS
     Dosage: 12 gm, per day, unknown
  2. BLOOD (BLOOD AND RELATED PRODUCTS) [Concomitant]

REACTIONS (7)
  - Hepatotoxicity [None]
  - Cholestasis [None]
  - Abdominal pain [None]
  - Haematuria [None]
  - Respiratory arrest [None]
  - Hepatic infarction [None]
  - Haematocrit decreased [None]
